FAERS Safety Report 13225990 (Version 16)
Quarter: 2024Q4

REPORT INFORMATION
  Report Type: Spontaneous
  Country: GB (occurrence: GB)
  Receive Date: 20170213
  Receipt Date: 20241226
  Transmission Date: 20250115
  Serious: Yes (Hospitalization, Other)
  Sender: TEVA
  Company Number: US-ASTRAZENECA-2017SE07280

PATIENT
  Age: 55 Year
  Sex: Male

DRUGS (56)
  1. CARVEDILOL [Interacting]
     Active Substance: CARVEDILOL
     Indication: Angina pectoris
     Dosage: 25 MG, BID
     Route: 065
     Dates: start: 20110616
  2. CARVEDILOL [Interacting]
     Active Substance: CARVEDILOL
     Indication: Angina pectoris
     Dosage: 50 MG, QD (25MG, BID): TABLET
     Route: 065
     Dates: start: 20110616
  3. ACETAMINOPHEN [Concomitant]
     Active Substance: ACETAMINOPHEN
     Indication: Pain in extremity
     Dosage: UNK TABLET SOLUTION FOR INJECTION:
     Route: 065
     Dates: start: 20110616
  4. ACETAMINOPHEN [Concomitant]
     Active Substance: ACETAMINOPHEN
     Indication: Pain in extremity
     Dosage: UNK:
     Route: 065
     Dates: start: 20160616
  5. FOLIC ACID [Concomitant]
     Active Substance: FOLIC ACID
     Indication: Anaemia
     Dosage: UNK,UNK,UNK:
     Route: 065
     Dates: start: 20131211
  6. NITROGLYCERIN [Concomitant]
     Active Substance: NITROGLYCERIN
     Indication: Cardiovascular disorder
     Dosage: UNK:
     Route: 065
     Dates: start: 20130902
  7. ACETAMINOPHEN\CODEINE PHOSPHATE [Concomitant]
     Active Substance: ACETAMINOPHEN\CODEINE PHOSPHATE
     Indication: Pain in extremity
     Dosage: UNK
     Dates: start: 20110616
  8. ACETAMINOPHEN\CODEINE PHOSPHATE [Concomitant]
     Active Substance: ACETAMINOPHEN\CODEINE PHOSPHATE
     Indication: Pain in extremity
     Dosage: UNK:
     Route: 065
     Dates: start: 20110616
  9. ACETAMINOPHEN\CODEINE PHOSPHATE [Concomitant]
     Active Substance: ACETAMINOPHEN\CODEINE PHOSPHATE
     Indication: Pain in extremity
     Dosage: UNK
     Dates: start: 20110616
  10. ACETAMINOPHEN\CODEINE PHOSPHATE [Concomitant]
     Active Substance: ACETAMINOPHEN\CODEINE PHOSPHATE
     Indication: Pain in extremity
     Dosage: UNK:
     Route: 065
     Dates: start: 20110616
  11. METHOTREXATE [Concomitant]
     Active Substance: METHOTREXATE
     Indication: Psoriasis
     Dosage: UNK:
     Route: 065
     Dates: start: 20150727
  12. QUETIAPINE FUMARATE [Concomitant]
     Active Substance: QUETIAPINE FUMARATE
     Indication: Depression
     Dosage: UNK:
     Route: 048
     Dates: start: 20150826
  13. SERTRALINE HYDROCHLORIDE [Concomitant]
     Active Substance: SERTRALINE HYDROCHLORIDE
     Indication: Depression
     Dosage: UNK
     Route: 065
     Dates: start: 20110616
  14. SERTRALINE HYDROCHLORIDE [Concomitant]
     Active Substance: SERTRALINE HYDROCHLORIDE
     Indication: Depression
     Dosage: UNK
     Dates: start: 20110816
  15. SERTRALINE HYDROCHLORIDE [Concomitant]
     Active Substance: SERTRALINE HYDROCHLORIDE
     Indication: Depression
     Dosage: 49/51
     Route: 065
     Dates: start: 20160701
  16. BOCOCIZUMAB [Interacting]
     Active Substance: BOCOCIZUMAB
     Indication: Cardiovascular disorder
     Dosage: QD (25 MG, BID):
     Route: 058
     Dates: start: 20110616
  17. BOCOCIZUMAB [Interacting]
     Active Substance: BOCOCIZUMAB
     Indication: Cardiovascular disorder
     Dosage: QD (25 MG, BID):
     Route: 058
     Dates: start: 20110616
  18. BOCOCIZUMAB [Interacting]
     Active Substance: BOCOCIZUMAB
     Indication: Cardiovascular disorder
     Dosage: Q2WEEKS, FREQUENCY - 2 WEEKS, E:
     Route: 058
     Dates: start: 20150908, end: 20161101
  19. BOCOCIZUMAB [Interacting]
     Active Substance: BOCOCIZUMAB
     Indication: Cardiovascular disorder
     Dosage: UNK:
     Route: 058
  20. BOCOCIZUMAB [Interacting]
     Active Substance: BOCOCIZUMAB
     Indication: Cardiovascular disorder
     Dosage: UNK,
     Route: 065
  21. OMEPRAZOLE [Interacting]
     Active Substance: OMEPRAZOLE
     Indication: Dyspepsia
     Dosage: UNK:
     Route: 048
     Dates: start: 20140116
  22. OMEPRAZOLE [Interacting]
     Active Substance: OMEPRAZOLE
     Indication: Dyspepsia
     Dosage: UNK:
     Route: 048
     Dates: start: 20140116
  23. QUETIAPINE FUMARATE [Interacting]
     Active Substance: QUETIAPINE FUMARATE
     Indication: Depression
     Dosage: UNK
     Route: 048
     Dates: start: 20150826
  24. QUETIAPINE FUMARATE [Interacting]
     Active Substance: QUETIAPINE FUMARATE
     Indication: Depression
     Dosage: UNK, QUETIAPINE FUMARATE:
     Route: 048
     Dates: start: 20150826
  25. FUROSEMIDE [Interacting]
     Active Substance: FUROSEMIDE
     Indication: Left ventricular dysfunction
     Dosage: QD
     Route: 065
     Dates: start: 20160402
  26. FUROSEMIDE [Interacting]
     Active Substance: FUROSEMIDE
     Indication: Left ventricular dysfunction
     Dosage: QD
     Route: 048
     Dates: start: 20160402
  27. CODEINE PHOSPHATE [Concomitant]
     Active Substance: CODEINE PHOSPHATE
     Indication: Product used for unknown indication
     Dosage: UNK
  28. CODEINE PHOSPHATE [Concomitant]
     Active Substance: CODEINE PHOSPHATE
     Indication: Product used for unknown indication
     Dosage: UNK:
     Route: 005
  29. CODEINE PHOSPHATE [Concomitant]
     Active Substance: CODEINE PHOSPHATE
     Indication: Product used for unknown indication
     Dosage: UNK
  30. CODEINE PHOSPHATE [Concomitant]
     Active Substance: CODEINE PHOSPHATE
     Indication: Product used for unknown indication
     Dosage: UNK:
     Route: 005
  31. ISOSORBIDE MONONITRATE [Interacting]
     Active Substance: ISOSORBIDE MONONITRATE
     Indication: Angina pectoris
     Dosage: QD
     Route: 048
     Dates: start: 20160205
  32. ISOSORBIDE MONONITRATE [Interacting]
     Active Substance: ISOSORBIDE MONONITRATE
     Indication: Angina pectoris
     Dosage: ORAL FORMULATION: DURULE,10 MG, DAILY
     Route: 048
     Dates: start: 20160205
  33. RAMIPRIL [Interacting]
     Active Substance: RAMIPRIL
     Indication: Cardiac failure
     Dosage: QD:
     Route: 048
     Dates: start: 20130813, end: 20160629
  34. RAMIPRIL [Interacting]
     Active Substance: RAMIPRIL
     Indication: Cardiac failure
     Dosage: QD
     Route: 048
     Dates: start: 20130813, end: 20160629
  35. ASPIRIN [Concomitant]
     Active Substance: ASPIRIN
     Indication: Cardiovascular disorder
     Route: 065
     Dates: start: 20130708
  36. IVABRADINE [Suspect]
     Active Substance: IVABRADINE
     Indication: Angina pectoris
     Dosage: 5 MG, BID, 12 HOURLY: IVABRADINE HYDROCHLORIDE:
     Route: 065
     Dates: start: 20150211
  37. IVABRADINE [Suspect]
     Active Substance: IVABRADINE
     Indication: Angina pectoris
     Dosage: QD:
     Route: 065
     Dates: start: 20150211
  38. IVABRADINE [Suspect]
     Active Substance: IVABRADINE
     Indication: Angina pectoris
     Route: 065
  39. ATORVASTATIN [Concomitant]
     Active Substance: ATORVASTATIN
     Indication: Cardiovascular disorder
     Dosage: UNK:
     Route: 065
     Dates: start: 20130708
  40. BETAMETHASONE DIPROPIONATE\CLOTRIMAZOLE [Concomitant]
     Active Substance: BETAMETHASONE DIPROPIONATE\CLOTRIMAZOLE
     Indication: Psoriasis
     Dosage: UNK, UNK
     Dates: start: 20150626
  41. BETAMETHASONE DIPROPIONATE\CLOTRIMAZOLE [Concomitant]
     Active Substance: BETAMETHASONE DIPROPIONATE\CLOTRIMAZOLE
     Indication: Psoriasis
     Dosage: UNK:
     Route: 065
     Dates: start: 20150626
  42. ENTRESTO [Concomitant]
     Active Substance: SACUBITRIL\VALSARTAN
     Indication: Left ventricular dysfunction
     Dosage: 49/51:
     Route: 065
     Dates: start: 20160701
  43. ENTRESTO [Concomitant]
     Active Substance: SACUBITRIL\VALSARTAN
     Indication: Left ventricular dysfunction
     Dosage: 49/51:
     Route: 048
     Dates: start: 20160701
  44. ENTRESTO [Concomitant]
     Active Substance: SACUBITRIL\VALSARTAN
     Indication: Left ventricular dysfunction
     Dosage: 49/51:
     Route: 065
     Dates: start: 20160701
  45. ENTRESTO [Concomitant]
     Active Substance: SACUBITRIL\VALSARTAN
     Indication: Left ventricular dysfunction
     Dosage: 49/51:
     Route: 065
     Dates: start: 20160701
  46. ENTRESTO [Concomitant]
     Active Substance: SACUBITRIL\VALSARTAN
     Indication: Left ventricular dysfunction
     Dosage: 49/51:
     Route: 065
     Dates: start: 20160701
  47. IVABRADINE [Interacting]
     Active Substance: IVABRADINE
     Indication: Angina pectoris
     Dosage: QD:
     Route: 065
     Dates: start: 20150211
  48. IVABRADINE [Interacting]
     Active Substance: IVABRADINE
     Indication: Angina pectoris
     Dosage: 5 MG, BID:
     Route: 065
     Dates: start: 20150211
  49. IVABRADINE [Interacting]
     Active Substance: IVABRADINE
     Indication: Angina pectoris
     Dosage: QD (5 MG, BID):
     Route: 065
     Dates: start: 20150211
  50. IVABRADINE [Interacting]
     Active Substance: IVABRADINE
     Indication: Angina pectoris
     Dosage: QD (5 MG, BID):
     Route: 065
  51. SACUBITRIL [Concomitant]
     Active Substance: SACUBITRIL
     Indication: Left ventricular dysfunction
     Dosage: 49/51
     Route: 048
     Dates: start: 20160701
  52. SACUBITRIL [Concomitant]
     Active Substance: SACUBITRIL
     Indication: Left ventricular dysfunction
     Dosage: UNK: TABLET
     Route: 065
     Dates: start: 20160701
  53. IVABRADINE [Interacting]
     Active Substance: IVABRADINE
     Indication: Angina pectoris
     Dosage: QD:
     Route: 065
     Dates: start: 20150211
  54. IVABRADINE [Interacting]
     Active Substance: IVABRADINE
     Indication: Angina pectoris
     Route: 065
     Dates: start: 20150211
  55. IVABRADINE [Interacting]
     Active Substance: IVABRADINE
     Indication: Angina pectoris
     Dosage: 5 MG, BID:
     Route: 065
     Dates: start: 20150211
  56. OMEPRAZOLE [Concomitant]
     Active Substance: OMEPRAZOLE
     Indication: Dyspepsia
     Route: 065
     Dates: start: 20140116

REACTIONS (14)
  - Ventricular dysfunction [Unknown]
  - Psoriasis [Unknown]
  - Pulmonary oedema [Unknown]
  - Contusion [Recovered/Resolved]
  - Drug interaction [Recovered/Resolved]
  - Hypotension [Recovered/Resolved]
  - Presyncope [Unknown]
  - Angina pectoris [Unknown]
  - Oedema peripheral [Not Recovered/Not Resolved]
  - Fluid retention [Not Recovered/Not Resolved]
  - Oedema peripheral [Not Recovered/Not Resolved]
  - Angina pectoris [Unknown]
  - Anaemia [Unknown]
  - Cardiac failure [Unknown]

NARRATIVE: CASE EVENT DATE: 20130919
